FAERS Safety Report 12143600 (Version 1)
Quarter: 2016Q1

REPORT INFORMATION
  Report Type: Spontaneous
  Country: KR (occurrence: KR)
  Receive Date: 20160304
  Receipt Date: 20160304
  Transmission Date: 20160526
  Serious: Yes (Hospitalization)
  Sender: FDA-Public Use
  Company Number: KR-AMGEN-KORCT2016026484

PATIENT
  Age: 62 Year
  Sex: Female
  Weight: 68 kg

DRUGS (9)
  1. DOXORUBICIN [Concomitant]
     Active Substance: DOXORUBICIN
     Dosage: 84 MG, UNK
     Route: 042
     Dates: start: 20141125, end: 20141125
  2. CYCLOPHOSPHAMIDE. [Concomitant]
     Active Substance: CYCLOPHOSPHAMIDE
     Dosage: 840 MG, UNK
     Route: 042
     Dates: start: 20141125, end: 20141125
  3. GASMOTIN [Concomitant]
     Active Substance: MOSAPRIDE CITRATE
     Dosage: 15 MG, UNK
     Route: 048
     Dates: start: 20141125
  4. RABIET [Concomitant]
     Dosage: 10 MG, UNK
     Route: 048
     Dates: start: 20141125
  5. EMEND [Concomitant]
     Active Substance: APREPITANT
     Dosage: 80 MG, UNK
     Route: 048
     Dates: start: 20141125
  6. G-LASTA [Suspect]
     Active Substance: PEGFILGRASTIM
     Indication: FEBRILE NEUTROPENIA
     Dosage: 6 MG, 1X/3WEEKS
     Route: 058
     Dates: start: 20141126, end: 20141126
  7. DOCETAXEL. [Concomitant]
     Active Substance: DOCETAXEL
     Dosage: 125 MG, UNK
     Route: 042
     Dates: start: 20141125, end: 20141125
  8. MACPERAN [Concomitant]
     Dosage: 15 MG, UNK
     Route: 048
     Dates: start: 20141125
  9. DEXAMETHASONE. [Concomitant]
     Active Substance: DEXAMETHASONE
     Dosage: 16 MG, UNK
     Route: 048
     Dates: start: 20141125, end: 20141127

REACTIONS (1)
  - Neutropenia [Recovered/Resolved]

NARRATIVE: CASE EVENT DATE: 20141202
